FAERS Safety Report 7083196-5 (Version None)
Quarter: 2010Q4

REPORT INFORMATION
  Report Type: 
  Country: None (occurrence: None)
  Receive Date: 20101026
  Receipt Date: 20101008
  Transmission Date: 20110411
  Serious: Yes (Other)
  Sender: FDA-Public Use
  Company Number: DSA_44070_2010

PATIENT
  Sex: Female

DRUGS (6)
  1. BUPROPION HYDROCHLORIDE [Suspect]
     Indication: PRODUCT USED FOR UNKNOWN INDICATION
     Dosage: 150 MG, 300 MG)
     Dates: start: 20091101, end: 20091201
  2. BUPROPION HYDROCHLORIDE [Suspect]
     Indication: PRODUCT USED FOR UNKNOWN INDICATION
     Dosage: 150 MG, 300 MG)
     Dates: start: 20091201
  3. LITHIUM [Concomitant]
  4. TRAMADOL [Concomitant]
  5. ORUDIS [Concomitant]
  6. PARACETAMOL [Concomitant]

REACTIONS (1)
  - ALANINE AMINOTRANSFERASE INCREASED [None]
